FAERS Safety Report 13767959 (Version 1)
Quarter: 2017Q3

REPORT INFORMATION
  Report Type: Spontaneous
  Country: US (occurrence: US)
  Receive Date: 20170719
  Receipt Date: 20170719
  Transmission Date: 20171127
  Serious: Yes (Other)
  Sender: FDA-Public Use
  Company Number: US-PFIZER INC-2017310837

PATIENT
  Sex: Male

DRUGS (1)
  1. LIPITOR [Suspect]
     Active Substance: ATORVASTATIN CALCIUM
     Dosage: UNK
     Dates: start: 201603, end: 2016

REACTIONS (4)
  - Muscle atrophy [Unknown]
  - Diabetes mellitus [Unknown]
  - Renal disorder [Unknown]
  - Myoglobinaemia [Unknown]
